FAERS Safety Report 4521330-9 (Version None)
Quarter: 2004Q4

REPORT INFORMATION
  Report Type: 
  Country: None (occurrence: None)
  Receive Date: 20041208
  Receipt Date: 20041202
  Transmission Date: 20050328
  Serious: Yes (Death, Other)
  Sender: FDA-Public Use
  Company Number: PHBS2004IT16183

PATIENT
  Age: 50 Year
  Sex: Male

DRUGS (3)
  1. IMATINIB [Suspect]
     Indication: CHRONIC MYELOID LEUKAEMIA
     Dosage: UNK, UNK
     Dates: start: 19991201, end: 20011001
  2. IMATINIB [Suspect]
     Dosage: UNK, UNK
     Dates: start: 20011001, end: 20030601
  3. IMATINIB [Suspect]
     Dates: start: 20031101

REACTIONS (6)
  - ASTHENIA [None]
  - CENTRAL NERVOUS SYSTEM NEOPLASM [None]
  - DYSPNOEA [None]
  - MEDIASTINAL MASS [None]
  - PLEURAL EFFUSION [None]
  - SMALL CELL LUNG CANCER EXTENSIVE STAGE [None]
